FAERS Safety Report 15787609 (Version 1)
Quarter: 2019Q1

REPORT INFORMATION
  Report Type: Spontaneous
  Country: AU (occurrence: AU)
  Receive Date: 20190103
  Receipt Date: 20190103
  Transmission Date: 20190417
  Serious: Yes (Other)
  Sender: FDA-Public Use
  Company Number: AU-ZO SKIN HEALTH-2018ZOS00013

PATIENT
  Age: 35 Year
  Sex: Female

DRUGS (4)
  1. PREDNISOLONE. [Concomitant]
     Active Substance: PREDNISOLONE
     Indication: PROPHYLAXIS
     Dosage: 1 MG/KG
     Route: 048
     Dates: start: 201607
  2. IDARUBICIN [Concomitant]
     Active Substance: IDARUBICIN
     Indication: ACUTE PROMYELOCYTIC LEUKAEMIA
     Dosage: 12 MG/M2 ON DAY 2, 4, 6, 8
     Route: 065
     Dates: start: 201607
  3. TRETINOIN. [Suspect]
     Active Substance: TRETINOIN
     Indication: ACUTE PROMYELOCYTIC LEUKAEMIA
     Dosage: 45 MG/M2 ON DAY 2, 4, 6, 8
     Route: 065
     Dates: start: 201607
  4. ARSENIC TRIOXIDE. [Suspect]
     Active Substance: ARSENIC TRIOXIDE
     Indication: ACUTE PROMYELOCYTIC LEUKAEMIA
     Dosage: 0.15 MG/KG
     Route: 065
     Dates: start: 201607

REACTIONS (1)
  - Differentiation syndrome [Recovered/Resolved]

NARRATIVE: CASE EVENT DATE: 2016
